FAERS Safety Report 8435961-7 (Version None)
Quarter: 2012Q2

REPORT INFORMATION
  Report Type: 
  Country: None (occurrence: None)
  Receive Date: 20120614
  Receipt Date: 20120607
  Transmission Date: 20120825
  Serious: Yes (Disabling)
  Sender: FDA-Public Use
  Company Number: US-SANOFI-AVENTIS-2012SA041005

PATIENT
  Sex: Male

DRUGS (3)
  1. SOLOSTAR [Suspect]
     Dates: start: 20120604
  2. NOVOLOG [Suspect]
     Dosage: WHENEVER BLOOD SUGAR ABOVE 200
     Route: 065
  3. LANTUS [Suspect]
     Route: 058
     Dates: start: 20020101

REACTIONS (3)
  - DYSGEUSIA [None]
  - BLOOD GLUCOSE INCREASED [None]
  - DIABETIC ULCER [None]
